FAERS Safety Report 15393270 (Version 1)
Quarter: 2018Q3

REPORT INFORMATION
  Report Type: Other
  Country: US (occurrence: US)
  Receive Date: 20180917
  Receipt Date: 20180917
  Transmission Date: 20181010
  Serious: Yes (Life-Threatening, Hospitalization)
  Sender: FDA-Public Use
  Company Number: US-LEADIANT BIOSCIENCES INC-2017STPI000606

PATIENT
  Age: 80 Year
  Sex: Female

DRUGS (1)
  1. MATULANE [Suspect]
     Active Substance: PROCARBAZINE HYDROCHLORIDE
     Indication: HODGKIN^S DISEASE
     Dosage: 50 MG, 2 CAPSULES QDFOR 14 DAYS AND 14 DAYS OFF
     Route: 048

REACTIONS (4)
  - Dyspnoea [Unknown]
  - Neutropenia [Recovered/Resolved]
  - Abdominal pain [Unknown]
  - Pneumonia [Recovered/Resolved]

NARRATIVE: CASE EVENT DATE: 20170726
